FAERS Safety Report 21060087 (Version 4)
Quarter: 2024Q2

REPORT INFORMATION
  Report Type: Spontaneous
  Country: US (occurrence: US)
  Receive Date: 20220708
  Receipt Date: 20240404
  Transmission Date: 20240716
  Serious: No
  Sender: FDA-Public Use
  Company Number: US-SA-SAC20220630001427

PATIENT
  Age: 19 Year
  Sex: Female

DRUGS (2)
  1. DUPIXENT [Suspect]
     Active Substance: DUPILUMAB
     Indication: Dermatitis atopic
     Dosage: 600 MG, 1X
     Route: 058
     Dates: start: 20220620, end: 20220620
  2. DUPIXENT [Suspect]
     Active Substance: DUPILUMAB
     Dosage: 300 MG, QOW
     Route: 058
     Dates: start: 2022

REACTIONS (12)
  - Arthropod bite [Unknown]
  - Swelling [Unknown]
  - Feeling hot [Unknown]
  - Injection site irritation [Unknown]
  - Injection site reaction [Unknown]
  - Pruritus [Unknown]
  - Skin burning sensation [Unknown]
  - Urticaria [Unknown]
  - Injection site swelling [Unknown]
  - Injection site erythema [Unknown]
  - Rash [Unknown]
  - Rash erythematous [Unknown]

NARRATIVE: CASE EVENT DATE: 20220620
